FAERS Safety Report 15364058 (Version 1)
Quarter: 2018Q3

REPORT INFORMATION
  Report Type: Spontaneous
  Country: US (occurrence: US)
  Receive Date: 20180908
  Receipt Date: 20180908
  Transmission Date: 20181010
  Serious: No
  Sender: FDA-Public Use
  Company Number: US-TORRENT-00006836

PATIENT
  Sex: Female

DRUGS (2)
  1. CITALOPRAM [Suspect]
     Active Substance: CITALOPRAM HYDROBROMIDE
     Indication: DEPRESSION
     Dosage: UNK
     Dates: start: 201807, end: 20180824
  2. IBUPROFEN. [Concomitant]
     Active Substance: IBUPROFEN
     Indication: PYREXIA
     Dosage: UNK

REACTIONS (20)
  - Decreased appetite [Not Recovered/Not Resolved]
  - Renal disorder [Not Recovered/Not Resolved]
  - Drug dose omission [Unknown]
  - Anxiety [Not Recovered/Not Resolved]
  - Mood altered [Not Recovered/Not Resolved]
  - Visual impairment [Not Recovered/Not Resolved]
  - Vision blurred [Not Recovered/Not Resolved]
  - Blood potassium decreased [Unknown]
  - Hyperhidrosis [Not Recovered/Not Resolved]
  - Restlessness [Not Recovered/Not Resolved]
  - Dizziness [Not Recovered/Not Resolved]
  - Eye pain [Not Recovered/Not Resolved]
  - Insomnia [Not Recovered/Not Resolved]
  - Headache [Not Recovered/Not Resolved]
  - Neck pain [Not Recovered/Not Resolved]
  - Pyrexia [Recovered/Resolved]
  - Stress [Not Recovered/Not Resolved]
  - Myalgia [Not Recovered/Not Resolved]
  - Musculoskeletal stiffness [Not Recovered/Not Resolved]
  - Blood magnesium decreased [Unknown]
